FAERS Safety Report 25978109 (Version 2)
Quarter: 2025Q4

REPORT INFORMATION
  Report Type: Spontaneous
  Country: CA (occurrence: CA)
  Receive Date: 20251030
  Receipt Date: 20251113
  Transmission Date: 20260119
  Serious: Yes (Hospitalization)
  Sender: CELLTRION
  Company Number: CA-CELLTRION INC.-2025CA039105

PATIENT

DRUGS (1)
  1. INFLIXIMAB [Suspect]
     Active Substance: INFLIXIMAB
     Indication: Rheumatoid arthritis
     Dosage: MAINTENANCE - 400MG - EVERY 4 WEEKS (6 MG/KG EVERY 4 WEEKS)
     Route: 042
     Dates: start: 20251022

REACTIONS (5)
  - Hospitalisation [Unknown]
  - Intentional dose omission [Unknown]
  - Overdose [Unknown]
  - Off label use [Unknown]
  - Product prescribing issue [Unknown]

NARRATIVE: CASE EVENT DATE: 20251022
